FAERS Safety Report 21707811 (Version 11)
Quarter: 2024Q3

REPORT INFORMATION
  Report Type: Spontaneous
  Country: CA (occurrence: CA)
  Receive Date: 20221209
  Receipt Date: 20240918
  Transmission Date: 20241017
  Serious: Yes (Life-Threatening, Hospitalization, Other)
  Sender: ORGANON
  Company Number: CA-009507513-1904CAN006316

PATIENT
  Age: 65 Year
  Sex: Female

DRUGS (171)
  1. FOSAMAX [Suspect]
     Active Substance: ALENDRONATE SODIUM
     Indication: Product used for unknown indication
     Dosage: 1 DOSAGE FORM,(DOSAGE FORM:NOT SPECIFIED)
     Route: 048
  2. FOSAMAX [Suspect]
     Active Substance: ALENDRONATE SODIUM
     Dosage: UNK
     Route: 065
  3. FOSAMAX [Suspect]
     Active Substance: ALENDRONATE SODIUM
     Dosage: 1 DOSAGE FORM
     Route: 048
  4. FOSAMAX [Suspect]
     Active Substance: ALENDRONATE SODIUM
     Dosage: 1 DOSAGE FORM
     Route: 065
  5. MOMETASONE FUROATE [Suspect]
     Active Substance: MOMETASONE FUROATE
     Indication: Product used for unknown indication
     Dosage: UNK; DOSAGE FORM: NOT SPECIFIED
     Route: 065
  6. MOMETASONE FUROATE [Suspect]
     Active Substance: MOMETASONE FUROATE
     Dosage: UNK,(DOSAGE FORM:NOT SPECIFIED)
     Route: 067
  7. XOLAIR [Suspect]
     Active Substance: OMALIZUMAB
     Indication: Asthma
     Dosage: 225 MILLIGRAM, BIW (DOSAGE FORM: POWDER AND SOLVENT FOR SOLUTION FOR INJECTION)
     Route: 058
     Dates: start: 20181228
  8. XOLAIR [Suspect]
     Active Substance: OMALIZUMAB
     Indication: Asthma
     Dosage: 225 MILLIGRAM, BIW
     Route: 058
     Dates: start: 20180419
  9. XOLAIR [Suspect]
     Active Substance: OMALIZUMAB
     Dosage: 225 MILLIGRAM, BIW
     Route: 058
     Dates: start: 20190514
  10. XOLAIR [Suspect]
     Active Substance: OMALIZUMAB
     Dosage: 225 MILLIGRAM, BIW
     Route: 058
     Dates: start: 20190430
  11. XOLAIR [Suspect]
     Active Substance: OMALIZUMAB
     Dosage: UNK
     Route: 058
     Dates: start: 20180712
  12. XOLAIR [Suspect]
     Active Substance: OMALIZUMAB
     Dosage: 225 MILLIGRAM, BIW
     Route: 058
     Dates: start: 20171201
  13. XOLAIR [Suspect]
     Active Substance: OMALIZUMAB
     Dosage: 225 MILLIGRAM, BIW
     Route: 058
     Dates: start: 20200303
  14. XOLAIR [Suspect]
     Active Substance: OMALIZUMAB
     Dosage: 225 MILLIGRAM, BIW
     Route: 058
     Dates: start: 20180629
  15. XOLAIR [Suspect]
     Active Substance: OMALIZUMAB
     Dosage: 225 MILLIGRAM, BIW
     Route: 058
     Dates: start: 20190709
  16. XOLAIR [Suspect]
     Active Substance: OMALIZUMAB
     Dosage: 225 MILLIGRAM, BIW
     Route: 058
     Dates: start: 20190723
  17. XOLAIR [Suspect]
     Active Substance: OMALIZUMAB
     Dosage: 225 MILLIGRAM, BIW
     Route: 058
     Dates: start: 20180517
  18. XOLAIR [Suspect]
     Active Substance: OMALIZUMAB
     Dosage: 225 MILLIGRAM, BIW
     Route: 058
     Dates: start: 20191015
  19. XOLAIR [Suspect]
     Active Substance: OMALIZUMAB
     Dosage: 225 MILLIGRAM, BIW
     Route: 058
     Dates: start: 20171130
  20. XOLAIR [Suspect]
     Active Substance: OMALIZUMAB
     Dosage: UNK
     Route: 058
     Dates: start: 20171228
  21. XOLAIR [Suspect]
     Active Substance: OMALIZUMAB
     Dosage: 225 MILLIGRAM, BIW
     Route: 058
  22. XOLAIR [Suspect]
     Active Substance: OMALIZUMAB
     Dosage: 225 MILLIGRAM, BIW
     Route: 058
     Dates: start: 20200512
  23. XOLAIR [Suspect]
     Active Substance: OMALIZUMAB
     Dosage: 225 MILLIGRAM, BIW
     Route: 058
     Dates: start: 20180614
  24. XOLAIR [Suspect]
     Active Substance: OMALIZUMAB
     Dosage: UNK
     Route: 058
     Dates: start: 201801
  25. XOLAIR [Suspect]
     Active Substance: OMALIZUMAB
     Dosage: 225 MILLIGRAM, BIW
     Route: 058
     Dates: start: 20181129
  26. XOLAIR [Suspect]
     Active Substance: OMALIZUMAB
     Dosage: 225 MILLIGRAM, BIW
     Route: 058
     Dates: start: 2020
  27. XOLAIR [Suspect]
     Active Substance: OMALIZUMAB
     Dosage: UNK
     Route: 058
     Dates: start: 20180125
  28. XOLAIR [Suspect]
     Active Substance: OMALIZUMAB
     Dosage: 225 MILLIGRAM, QOW
     Route: 065
  29. XOLAIR [Suspect]
     Active Substance: OMALIZUMAB
     Dosage: UNK,(DOSAGE FORM:NOT SPECIFIED)
     Route: 058
  30. XOLAIR [Suspect]
     Active Substance: OMALIZUMAB
     Dosage: 450 MILLIGRAM, 1 EVERY 1 WEEKS
     Route: 059
  31. XOLAIR [Suspect]
     Active Substance: OMALIZUMAB
     Dosage: 450 MILLIGRAM, 1 EVERY 1 DAYS
     Route: 058
  32. ATORVASTATIN CALCIUM [Suspect]
     Active Substance: ATORVASTATIN CALCIUM
     Indication: Product used for unknown indication
     Dosage: 1 DOSAGE FORM,  1 EVERY 1 DAY (DOSAGE FORM: NOT SPECIFIED)
     Route: 065
  33. ATORVASTATIN CALCIUM [Suspect]
     Active Substance: ATORVASTATIN CALCIUM
     Dosage: 1 DOSAGE FORM, (DOSAGE FORM; NOT SPECIFIED)
     Route: 065
  34. METFORMIN HYDROCHLORIDE [Suspect]
     Active Substance: METFORMIN HYDROCHLORIDE
     Indication: Product used for unknown indication
     Dosage: 1000 MG, 2 EVERY 1 DAY (BID)
     Route: 048
  35. METFORMIN HYDROCHLORIDE [Suspect]
     Active Substance: METFORMIN HYDROCHLORIDE
     Dosage: UNK, 2 EVERY 1 DAYS (BID)
     Route: 048
  36. METFORMIN HYDROCHLORIDE [Suspect]
     Active Substance: METFORMIN HYDROCHLORIDE
     Dosage: UNK
     Route: 048
  37. METFORMIN HYDROCHLORIDE [Suspect]
     Active Substance: METFORMIN HYDROCHLORIDE
     Dosage: 2 DOSAGE FORM, 1 EVERY 1 DAYS
     Route: 048
  38. METFORMIN HYDROCHLORIDE [Suspect]
     Active Substance: METFORMIN HYDROCHLORIDE
     Dosage: UNK, 1 EVERY 12 HOURS
     Route: 048
  39. METFORMIN HYDROCHLORIDE [Suspect]
     Active Substance: METFORMIN HYDROCHLORIDE
     Dosage: 2 DOSAGE FORM, 1 EVERY 1 DAY
     Route: 065
  40. METFORMIN HYDROCHLORIDE [Suspect]
     Active Substance: METFORMIN HYDROCHLORIDE
     Dosage: 1 DOSAGE FORM, 2 EVERY 1 DAYS
     Route: 048
  41. METFORMIN HYDROCHLORIDE [Suspect]
     Active Substance: METFORMIN HYDROCHLORIDE
     Dosage: UNK
     Route: 065
  42. PREDNISONE [Suspect]
     Active Substance: PREDNISONE
     Indication: Asthma
     Dosage: 50 MILLIGRAM, QD (5 DAYS)
     Route: 048
  43. PREDNISONE [Suspect]
     Active Substance: PREDNISONE
     Indication: Asthma
     Dosage: 15 MILLIGRAM, QD (1 EVERY 1 DAYS)
     Route: 065
     Dates: start: 20200316
  44. PREDNISONE [Suspect]
     Active Substance: PREDNISONE
     Indication: Product used for unknown indication
     Dosage: 17.5 MILLIGRAM, QD (1 EVERY 1 DAYS),(DOSAGE FORM:NOT SPECIFIED)
     Route: 048
     Dates: start: 20180111
  45. PREDNISONE [Suspect]
     Active Substance: PREDNISONE
     Dosage: 35 MILLIGRAM, 1 EVERY 1 DAYS,(DOSAGE FORM:NOT SPECIFIED)
     Route: 048
     Dates: start: 2013
  46. PREDNISONE [Suspect]
     Active Substance: PREDNISONE
     Dosage: 10 MILLIGRAM, 1 EVERY 1 DAY (QD); DOSAGE FORM: NOT SPECIFIED
     Route: 065
     Dates: start: 20200623
  47. PREDNISONE [Suspect]
     Active Substance: PREDNISONE
     Dosage: 15 MILLIGRAM, 1 EVERY 1 DAY (QD); DOSAGE FORM: NOT SPECIFIED
     Route: 065
  48. PREDNISONE [Suspect]
     Active Substance: PREDNISONE
     Dosage: 10 MILLIGRAM, QD (1 EVERY 1 DAYS)
     Route: 065
  49. PREDNISONE [Suspect]
     Active Substance: PREDNISONE
     Dosage: 50 MILLIGRAM, 1 EVERY 1 DAY (QD); DOSAGE FORM: NOT SPECIFIED
     Route: 048
  50. PREDNISONE [Suspect]
     Active Substance: PREDNISONE
     Dosage: 35 MILLIGRAM, 1 EVERY 1 DAY (QD); DOSAGE FORM: NOT SPECIFIED
     Route: 048
  51. PREDNISONE [Suspect]
     Active Substance: PREDNISONE
     Dosage: 17.5 MILLIGRAM, 1 EVERY 1 DAY (QD); DOSAGE FORM: NOT SPECIFIED
     Route: 048
  52. PREDNISONE [Suspect]
     Active Substance: PREDNISONE
     Dosage: 50 MILLIGRAM, DOSAGE FORM: NOT SPECIFIED
     Route: 048
  53. PREDNISONE [Suspect]
     Active Substance: PREDNISONE
     Dosage: 50 MILLIGRAM, 1 EVERY 1 DAYS,(DOSAGE FORM:NOT SPECIFIED)
     Route: 065
  54. PREDNISONE [Suspect]
     Active Substance: PREDNISONE
     Dosage: 15 MILLIGRAM, 1 EVERY 1 DAYS
     Route: 048
  55. PREDNISONE [Suspect]
     Active Substance: PREDNISONE
     Dosage: 50 MILLIGRAM, DOSAGE FORM: NOT SPECIFIED
     Route: 065
  56. ATORVASTATIN [Suspect]
     Active Substance: ATORVASTATIN
     Indication: Product used for unknown indication
     Dosage: 1 DOSAGE FORM, QD
     Route: 065
  57. CLONAZEPAM [Suspect]
     Active Substance: CLONAZEPAM
     Indication: Product used for unknown indication
     Dosage: 1 DOSAGE FORM, 3 EVERY 1 DAY
     Route: 065
  58. CLONAZEPAM [Suspect]
     Active Substance: CLONAZEPAM
     Dosage: 3 DOSAGE FORM
     Route: 065
  59. CLONAZEPAM [Suspect]
     Active Substance: CLONAZEPAM
     Dosage: 1 DOSAGE FORM
     Route: 065
  60. CLONAZEPAM [Suspect]
     Active Substance: CLONAZEPAM
     Dosage: 1 DOSAGE FORM, 1 EVERY 8 HOURS
     Route: 065
  61. DILTIAZEM [Suspect]
     Active Substance: DILTIAZEM
     Indication: Product used for unknown indication
     Dosage: 1 DOSAGE FORM, QD
     Route: 048
  62. DILTIAZEM HYDROCHLORIDE [Suspect]
     Active Substance: DILTIAZEM HYDROCHLORIDE
     Indication: Product used for unknown indication
     Dosage: 1 DOSAGE FORM, 1 EVERY 1 DAYS,(DOSAGE FORM:NOT SPECIFIED)
     Route: 048
  63. DILTIAZEM HYDROCHLORIDE [Suspect]
     Active Substance: DILTIAZEM HYDROCHLORIDE
     Dosage: 1 DOSAGE FORM
     Route: 048
  64. DILTIAZEM HYDROCHLORIDE [Suspect]
     Active Substance: DILTIAZEM HYDROCHLORIDE
     Dosage: 1 DOSAGE FORM, 1 EVERY 1 DAYS
     Route: 065
  65. DILTIAZEM HYDROCHLORIDE [Suspect]
     Active Substance: DILTIAZEM HYDROCHLORIDE
     Dosage: 1 DOSAGE FORM
     Route: 065
  66. ZINC [Suspect]
     Active Substance: ZINC
     Indication: Product used for unknown indication
     Dosage: UNK; DOSAGE FORM: NOT SPECIFIED
     Route: 065
  67. IODINE [Suspect]
     Active Substance: IODINE
     Indication: Product used for unknown indication
     Dosage: UNK
     Route: 065
  68. THEOPHYLLINE [Suspect]
     Active Substance: THEOPHYLLINE
     Dosage: UNK
     Route: 065
  69. FORMOTEROL FUMARATE [Suspect]
     Active Substance: FORMOTEROL FUMARATE
     Indication: Asthma
     Dosage: UNK
  70. METFORMIN [Suspect]
     Active Substance: METFORMIN HYDROCHLORIDE
     Indication: Product used for unknown indication
     Dosage: 2 DOSAGE FORM, QD (1 EVERY 1 DAYS)
     Route: 048
  71. OMALIZUMAB [Suspect]
     Active Substance: OMALIZUMAB
     Indication: Product used for unknown indication
     Dosage: 225 MILLIGRAM, BIW
     Route: 058
  72. OMALIZUMAB [Suspect]
     Active Substance: OMALIZUMAB
     Indication: Asthma
     Dosage: 225 MILLIGRAM, BIW
     Route: 058
  73. OMALIZUMAB [Suspect]
     Active Substance: OMALIZUMAB
     Dosage: 225 MILLIGRAM, BIW
     Route: 058
  74. OMALIZUMAB [Suspect]
     Active Substance: OMALIZUMAB
     Dosage: 225 MILLIGRAM, BIW
     Route: 058
  75. OMALIZUMAB [Suspect]
     Active Substance: OMALIZUMAB
     Dosage: 225 MILLIGRAM, BIW
     Route: 058
  76. OMALIZUMAB [Suspect]
     Active Substance: OMALIZUMAB
     Dosage: 225 MILLIGRAM, BIW
     Route: 058
  77. OMALIZUMAB [Suspect]
     Active Substance: OMALIZUMAB
     Dosage: 225 MILLIGRAM, BIW
     Route: 058
  78. OMALIZUMAB [Suspect]
     Active Substance: OMALIZUMAB
     Dosage: 225 MILLIGRAM, BIW
     Route: 058
  79. OMALIZUMAB [Suspect]
     Active Substance: OMALIZUMAB
     Dosage: UNK
     Route: 058
  80. OMALIZUMAB [Suspect]
     Active Substance: OMALIZUMAB
     Dosage: UNK
     Route: 058
  81. OMALIZUMAB [Suspect]
     Active Substance: OMALIZUMAB
     Dosage: UNK
     Route: 058
  82. OMALIZUMAB [Suspect]
     Active Substance: OMALIZUMAB
     Dosage: 225 MILLIGRAM, BIW
     Route: 058
  83. OMALIZUMAB [Suspect]
     Active Substance: OMALIZUMAB
     Dosage: 225 MILLIGRAM, BIW
     Route: 058
  84. OMALIZUMAB [Suspect]
     Active Substance: OMALIZUMAB
     Dosage: 225 MILLIGRAM, BIW
     Route: 058
  85. OMALIZUMAB [Suspect]
     Active Substance: OMALIZUMAB
     Dosage: 225 MILLIGRAM, BIW
     Route: 058
  86. OMALIZUMAB [Suspect]
     Active Substance: OMALIZUMAB
     Dosage: 225 MILLIGRAM, BIW
     Route: 058
  87. OMALIZUMAB [Suspect]
     Active Substance: OMALIZUMAB
     Dosage: 225 MILLIGRAM, BIW
     Route: 058
  88. OMALIZUMAB [Suspect]
     Active Substance: OMALIZUMAB
     Dosage: 225 MILLIGRAM, BIW
     Route: 058
  89. OMALIZUMAB [Suspect]
     Active Substance: OMALIZUMAB
     Dosage: 225 MILLIGRAM, BIW
     Route: 058
  90. OMALIZUMAB [Suspect]
     Active Substance: OMALIZUMAB
     Dosage: UNK
     Route: 058
  91. OMALIZUMAB [Suspect]
     Active Substance: OMALIZUMAB
     Dosage: 225 MILLIGRAM, 2 EVERY 1 WEEK
     Route: 058
  92. OMALIZUMAB [Suspect]
     Active Substance: OMALIZUMAB
     Dosage: 225 MILLIGRAM
     Route: 058
  93. OMALIZUMAB [Suspect]
     Active Substance: OMALIZUMAB
     Dosage: 225 MILLIGRAM, BIW(2 EVERY 1 WEEKS) (DOSAGE FORM: NOT SPECIFIED)
     Route: 058
  94. OMALIZUMAB [Suspect]
     Active Substance: OMALIZUMAB
     Dosage: 225 MILLIGRAM, 1 EVERY 2 WEEKS
     Route: 058
  95. OMALIZUMAB [Suspect]
     Active Substance: OMALIZUMAB
     Dosage: 225 MILLIGRAM, 1 EVERY 2 WEEKS
     Route: 058
  96. OMALIZUMAB [Suspect]
     Active Substance: OMALIZUMAB
     Dosage: 225 MILLIGRAM,1 EVERY 2 WEEKS
     Route: 058
  97. OMALIZUMAB [Suspect]
     Active Substance: OMALIZUMAB
     Dosage: 225 MILLIGRAM,1 EVERY 2 WEEKS
     Route: 058
  98. OMALIZUMAB [Suspect]
     Active Substance: OMALIZUMAB
     Dosage: 225 MILLIGRAM,1 EVERY 2 WEEKS
     Route: 058
  99. OMALIZUMAB [Suspect]
     Active Substance: OMALIZUMAB
     Dosage: 225 MILLIGRAM,1 EVERY 2 WEEKS
     Route: 058
  100. OMALIZUMAB [Suspect]
     Active Substance: OMALIZUMAB
     Dosage: 225 MILLIGRAM,1 EVERY 2 WEEKS
     Route: 058
  101. OMALIZUMAB [Suspect]
     Active Substance: OMALIZUMAB
     Dosage: 225 MILLIGRAM,1 EVERY 2 WEEKS
     Route: 058
  102. OMALIZUMAB [Suspect]
     Active Substance: OMALIZUMAB
     Dosage: 225 MILLIGRAM,1 EVERY 2 WEEKS
     Route: 058
  103. OMALIZUMAB [Suspect]
     Active Substance: OMALIZUMAB
     Dosage: 225 MILLIGRAM,1 EVERY 2 WEEKS
     Route: 058
  104. OMALIZUMAB [Suspect]
     Active Substance: OMALIZUMAB
     Dosage: 225 MILLIGRAM,1 EVERY 2 WEEKS
     Route: 058
  105. OMALIZUMAB [Suspect]
     Active Substance: OMALIZUMAB
     Dosage: 225 MILLIGRAM,1 EVERY 2 WEEKS
     Route: 058
  106. OMALIZUMAB [Suspect]
     Active Substance: OMALIZUMAB
     Dosage: 450 MILLIGRAM, 1 EVERY 1 DAYS
     Route: 058
  107. OMALIZUMAB [Suspect]
     Active Substance: OMALIZUMAB
     Dosage: 450 MILLIGRAM, 1 EVERY 1 DAYS
     Route: 058
  108. OMALIZUMAB [Suspect]
     Active Substance: OMALIZUMAB
     Dosage: 225 MILLIGRAM, 2 EVERY 1 DAYS
     Route: 058
  109. OMALIZUMAB [Suspect]
     Active Substance: OMALIZUMAB
     Dosage: 225 MILLIGRAM, 2 EVERY 1 DAYS
     Route: 058
  110. OMALIZUMAB [Suspect]
     Active Substance: OMALIZUMAB
     Dosage: 225 MILLIGRAM, 2 EVERY 1 DAYS
     Route: 058
  111. OMALIZUMAB [Suspect]
     Active Substance: OMALIZUMAB
     Dosage: 225 MILLIGRAM, 2 EVERY 1 DAYS
     Route: 058
  112. OMALIZUMAB [Suspect]
     Active Substance: OMALIZUMAB
     Dosage: 225 MILLIGRAM, 2 EVERY 1 DAYS
     Route: 058
  113. OMALIZUMAB [Suspect]
     Active Substance: OMALIZUMAB
     Dosage: 450 MILLIGRAM, 1 EVERY 1 WEEKS,(DOSAGE FORM:NOT SPECIFIED)
     Route: 058
  114. OMALIZUMAB [Suspect]
     Active Substance: OMALIZUMAB
     Dosage: UNK
     Route: 065
  115. OMALIZUMAB [Suspect]
     Active Substance: OMALIZUMAB
     Dosage: 222 MILLIGRAM,1 EVERY 2 WEEKS
     Route: 058
  116. ZENHALE [Concomitant]
     Active Substance: FORMOTEROL FUMARATE\MOMETASONE FUROATE
     Indication: Asthma
     Dosage: 2 DOSAGE FORM, QID
     Route: 055
     Dates: start: 201703
  117. ZENHALE [Concomitant]
     Active Substance: FORMOTEROL FUMARATE\MOMETASONE FUROATE
     Indication: Asthma
     Dosage: 2 DOSAGE FORM, QID
     Route: 055
     Dates: start: 201703
  118. ZENHALE [Concomitant]
     Active Substance: FORMOTEROL FUMARATE\MOMETASONE FUROATE
     Indication: Product used for unknown indication
     Dosage: 2 DOSAGE FORM, 4 EVERY 1 DAYS (QID)
  119. ZENHALE [Concomitant]
     Active Substance: FORMOTEROL FUMARATE\MOMETASONE FUROATE
     Dosage: 8 DOSAGE FORM;  DOSAGE FORM: AEROSOL METERED DOSE
     Route: 065
  120. ZENHALE [Concomitant]
     Active Substance: FORMOTEROL FUMARATE\MOMETASONE FUROATE
     Dosage: 2 DOSAGE FORM, 4 EVERY 1 DAYS (QID) (AEROSOL,METERED DOSE)
  121. ZENHALE [Concomitant]
     Active Substance: FORMOTEROL FUMARATE\MOMETASONE FUROATE
     Dosage: 2 DOSAGE FORM, 4 EVERY 1 DAYS
     Route: 065
  122. ZENHALE [Concomitant]
     Active Substance: FORMOTEROL FUMARATE\MOMETASONE FUROATE
     Dosage: 2 DOSAGE FORM, 4 EVERY 1 DAYS (QID) (AEROSOL,METERED DOSE)
     Route: 050
  123. FOSAMAX [Concomitant]
     Active Substance: ALENDRONATE SODIUM
     Indication: Product used for unknown indication
     Dosage: UNK
     Route: 065
  124. FOSAMAX [Concomitant]
     Active Substance: ALENDRONATE SODIUM
     Dosage: 1 DOSAGE FORM
     Route: 048
  125. MOMETASONE FUROATE [Concomitant]
     Active Substance: MOMETASONE FUROATE
     Indication: Asthma
     Dosage: UNK,(DOSAGE FORM:NOT SPECIFIED)
     Route: 065
  126. ACLIDINIUM BROMIDE [Concomitant]
     Active Substance: ACLIDINIUM BROMIDE
     Indication: Asthma
     Dosage: 2 DF BID
     Route: 055
  127. ACLIDINIUM BROMIDE [Concomitant]
     Active Substance: ACLIDINIUM BROMIDE
     Indication: Asthma
     Dosage: 2 DOSAGE FORM, 2 EVERY 1 DAYS (BID)
  128. LASIX [Concomitant]
     Active Substance: FUROSEMIDE
     Indication: Product used for unknown indication
     Dosage: 1 DF, QD (20 MG) (ALSO REPORTED AS DOSAFE FORM NOT SPECIFIED)
     Route: 048
  129. LASIX [Concomitant]
     Active Substance: FUROSEMIDE
     Dosage: 60 MILLIGRAM; 1 EVERY 1 DAY (QD) (ALSO REPORTED AS DOSAGE FORM NOT SPECIFIED)
     Route: 065
  130. LASIX [Concomitant]
     Active Substance: FUROSEMIDE
     Dosage: 1 DOSAGE FORM; 1 EVERY 1 DAY (QD), DOSAGE FORM: NOT SPECIFIED
     Route: 048
  131. LASIX [Concomitant]
     Active Substance: FUROSEMIDE
     Dosage: 60 MILLIGRAM,(DOSAGE FORM:NOT SPECIFIED)
     Route: 065
  132. LASIX [Concomitant]
     Active Substance: FUROSEMIDE
     Dosage: 1 DOSAGE FORM
     Route: 048
  133. LASIX [Concomitant]
     Active Substance: FUROSEMIDE
     Dosage: 1 DOSAGE FORM, QD (1 EVERY 1 DAYS); DOSAGE FORM UNSPECIFIED
     Route: 048
  134. VENTOLIN [Concomitant]
     Active Substance: ALBUTEROL SULFATE
     Indication: Asthma
     Dosage: 4 DOSAGE FORM
  135. VENTOLIN [Concomitant]
     Active Substance: ALBUTEROL SULFATE
     Indication: Asthma
     Dosage: 4 DF UNK
     Route: 055
     Dates: start: 2010
  136. VENTOLIN [Concomitant]
     Active Substance: ALBUTEROL SULFATE
     Indication: Product used for unknown indication
     Dosage: 4 DOSAGE FORM (DOSAGE FORM: NOT SPECIFIED)
     Route: 065
  137. VENTOLIN [Concomitant]
     Active Substance: ALBUTEROL SULFATE
     Dosage: 40 DOSAGE FORM (DOSAGE FORM: NOT SPECIFIED)
  138. VENTOLIN [Concomitant]
     Active Substance: ALBUTEROL SULFATE
     Dosage: UNK,(DOSAGE FORM:NOT SPECIFIED)
  139. VENTOLIN [Concomitant]
     Active Substance: ALBUTEROL SULFATE
     Dosage: 40 MILLIGRAM
  140. VENTOLIN [Concomitant]
     Active Substance: ALBUTEROL SULFATE
     Dosage: 40 DOSAGE FORM (DOSAGE FORM: NOT SPECIFIED)
     Route: 065
  141. KEFLEX [Concomitant]
     Active Substance: CEPHALEXIN
     Indication: Product used for unknown indication
     Dosage: UNK,(DOSAGE FORM:NOT SPECIFIED)
     Route: 065
  142. INSULIN PORK\INSULIN PURIFIED PORK [Concomitant]
     Active Substance: INSULIN PORK\INSULIN PURIFIED PORK
     Indication: Product used for unknown indication
     Dosage: UNK (UP FROM 14 TO 24 UNITS DAILY)
     Route: 065
  143. INSULIN PORK\INSULIN PURIFIED PORK [Concomitant]
     Active Substance: INSULIN PORK\INSULIN PURIFIED PORK
     Dosage: UNK
     Route: 065
  144. PIPERACILLIN SODIUM\TAZOBACTAM SODIUM [Concomitant]
     Active Substance: PIPERACILLIN SODIUM\TAZOBACTAM SODIUM
     Indication: Product used for unknown indication
     Dosage: UNK
     Route: 065
     Dates: end: 20210215
  145. ACLIDINIUM BROMIDE [Concomitant]
     Active Substance: ACLIDINIUM BROMIDE
     Indication: Asthma
     Dosage: 2 DF, (1 EVERY 1 DAYS)
     Route: 065
  146. ACLIDINIUM BROMIDE [Concomitant]
     Active Substance: ACLIDINIUM BROMIDE
     Dosage: 2 DOSAGE FORM, 2 EVERY 1 DAYS
  147. ACLIDINIUM BROMIDE [Concomitant]
     Active Substance: ACLIDINIUM BROMIDE
     Dosage: UNK
  148. ACLIDINIUM BROMIDE [Concomitant]
     Active Substance: ACLIDINIUM BROMIDE
     Dosage: 2 DOSAGE FORM
     Route: 065
  149. ACLIDINIUM BROMIDE [Concomitant]
     Active Substance: ACLIDINIUM BROMIDE
     Dosage: UNK
     Route: 065
  150. ACLIDINIUM BROMIDE [Concomitant]
     Active Substance: ACLIDINIUM BROMIDE
     Dosage: 2 DOSAGE FORM, 1 EVERY 12 HOURS
     Route: 065
  151. ACLIDINIUM BROMIDE [Concomitant]
     Active Substance: ACLIDINIUM BROMIDE
     Dosage: 2 DOSAGE FORM, 1 EVERY 1 DAY
  152. ACLIDINIUM BROMIDE [Concomitant]
     Active Substance: ACLIDINIUM BROMIDE
     Dosage: 2 DOSAGE FORM, BID
     Route: 050
  153. POTASSIUM [Concomitant]
     Active Substance: POTASSIUM
     Indication: Product used for unknown indication
     Dosage: UNK; DOSAGE FORM: NOT SPECIFIED
     Route: 065
  154. ISOPHANE INSULIN [Concomitant]
     Active Substance: INSULIN NOS
     Indication: Product used for unknown indication
     Dosage: UNK
     Route: 065
  155. ALBUTEROL SULFATE [Concomitant]
     Active Substance: ALBUTEROL SULFATE
     Indication: Product used for unknown indication
     Dosage: UNK
     Route: 065
  156. ALBUTEROL SULFATE [Concomitant]
     Active Substance: ALBUTEROL SULFATE
     Indication: Asthma
     Dosage: 4 DOSAGE FORM; DOSAGE FORM: NOT SPECIFIED
     Route: 065
  157. ALBUTEROL SULFATE [Concomitant]
     Active Substance: ALBUTEROL SULFATE
     Dosage: 4 DOSAGE FORM
     Route: 050
  158. ALBUTEROL [Concomitant]
     Active Substance: ALBUTEROL
     Dosage: UNK
     Route: 065
  159. FUROSEMIDE [Concomitant]
     Active Substance: FUROSEMIDE
     Indication: Product used for unknown indication
     Dosage: UNK
     Route: 065
  160. FUROSEMIDE [Concomitant]
     Active Substance: FUROSEMIDE
     Dosage: UNK
     Route: 065
  161. FUROSEMIDE [Concomitant]
     Active Substance: FUROSEMIDE
     Dosage: 1 DOSAGE FORM, 1 EVERY 1 DAYS,(DOSAGE FORM:NOT SPECIFIED)
     Route: 048
  162. FUROSEMIDE [Concomitant]
     Active Substance: FUROSEMIDE
     Dosage: 60 MILLIGRAM,1 EVERY 1 DAYS,(DOSAGE FORM:NOT SPECIFIED)
     Route: 065
  163. FUROSEMIDE [Concomitant]
     Active Substance: FUROSEMIDE
     Dosage: 1 DOSAGE FORM, 1 EVERY 1 DAYS,(DOSAGE FORM:NOT SPECIFIED)
     Route: 065
  164. CEPHALEXIN MONOHYDRATE [Concomitant]
     Active Substance: CEPHALEXIN MONOHYDRATE
     Indication: Product used for unknown indication
     Dosage: UNK,(DOSAGE FORM:NOT SPECIFIED)
     Route: 065
  165. FORMOTEROL FUMARATE [Concomitant]
     Active Substance: FORMOTEROL FUMARATE
     Indication: Asthma
     Dosage: 2 DOSAGE FORM
  166. FORMOTEROL FUMARATE [Concomitant]
     Active Substance: FORMOTEROL FUMARATE
     Dosage: UNK,(DOSAGE FORM:NOT SPCIFIED)
     Route: 065
  167. FORMOTEROL FUMARATE [Concomitant]
     Active Substance: FORMOTEROL FUMARATE
     Dosage: 2 DOSAGE FORM
     Route: 065
  168. APIXABAN [Concomitant]
     Active Substance: APIXABAN
     Indication: Product used for unknown indication
     Dosage: UNK
     Route: 065
  169. CLONAZEPAM [Concomitant]
     Active Substance: CLONAZEPAM
     Indication: Product used for unknown indication
     Dosage: 1 DOSAGE FORM, TID
     Route: 065
  170. METFORMIN [Concomitant]
     Active Substance: METFORMIN HYDROCHLORIDE
     Indication: Product used for unknown indication
     Dosage: UNK UNK, BID
     Route: 065
  171. VENTOLIN [Concomitant]
     Active Substance: ALBUTEROL SULFATE
     Indication: Asthma
     Dosage: 4 DOSAGE FORM
     Route: 050

REACTIONS (133)
  - Migraine [Not Recovered/Not Resolved]
  - Chills [Not Recovered/Not Resolved]
  - Hemiparaesthesia [Recovered/Resolved]
  - Influenza [Not Recovered/Not Resolved]
  - Sinusitis [Not Recovered/Not Resolved]
  - Bronchopulmonary aspergillosis allergic [Not Recovered/Not Resolved]
  - Haemoglobin decreased [Not Recovered/Not Resolved]
  - Blood urine present [Not Recovered/Not Resolved]
  - Cellulitis [Not Recovered/Not Resolved]
  - Haematuria [Not Recovered/Not Resolved]
  - Pollakiuria [Not Recovered/Not Resolved]
  - Myalgia [Not Recovered/Not Resolved]
  - Animal scratch [Not Recovered/Not Resolved]
  - Hypoaesthesia oral [Not Recovered/Not Resolved]
  - Myopathy [Not Recovered/Not Resolved]
  - Nephrolithiasis [Not Recovered/Not Resolved]
  - Procedural pain [Recovering/Resolving]
  - Panic attack [Not Recovered/Not Resolved]
  - Body temperature increased [Not Recovered/Not Resolved]
  - Oropharyngeal pain [Not Recovered/Not Resolved]
  - Blood pressure systolic increased [Not Recovered/Not Resolved]
  - Incorrect dose administered [Not Recovered/Not Resolved]
  - Gait disturbance [Not Recovered/Not Resolved]
  - Sinus disorder [Not Recovered/Not Resolved]
  - Blister [Not Recovered/Not Resolved]
  - Pneumonia [Not Recovered/Not Resolved]
  - Obstructive airways disorder [Not Recovered/Not Resolved]
  - Injection site pain [Not Recovered/Not Resolved]
  - Nasal polyps [Not Recovered/Not Resolved]
  - Skin laceration [Not Recovered/Not Resolved]
  - Bladder pain [Not Recovered/Not Resolved]
  - Dysarthria [Not Recovered/Not Resolved]
  - Back pain [Not Recovered/Not Resolved]
  - Ear pain [Not Recovered/Not Resolved]
  - Dysuria [Not Recovered/Not Resolved]
  - Arthralgia [Not Recovered/Not Resolved]
  - Wound complication [Not Recovered/Not Resolved]
  - Diarrhoea [Not Recovered/Not Resolved]
  - Muscular weakness [Not Recovered/Not Resolved]
  - Syncope [Not Recovered/Not Resolved]
  - Pyrexia [Not Recovered/Not Resolved]
  - Abdominal pain [Not Recovered/Not Resolved]
  - Burning sensation [Not Recovered/Not Resolved]
  - Polymyalgia rheumatica [Not Recovered/Not Resolved]
  - Blood iron decreased [Not Recovered/Not Resolved]
  - Hypokinesia [Not Recovered/Not Resolved]
  - Paranasal sinus discomfort [Not Recovered/Not Resolved]
  - Tunnel vision [Not Recovered/Not Resolved]
  - Alveolar osteitis [Not Recovered/Not Resolved]
  - Joint injury [Not Recovered/Not Resolved]
  - Cough [Not Recovered/Not Resolved]
  - Cardiac failure [Not Recovered/Not Resolved]
  - Rales [Not Recovered/Not Resolved]
  - Sinus pain [Not Recovered/Not Resolved]
  - Influenza like illness [Not Recovered/Not Resolved]
  - Balance disorder [Not Recovered/Not Resolved]
  - Decreased appetite [Not Recovered/Not Resolved]
  - Pain in extremity [Not Recovered/Not Resolved]
  - Heart rate increased [Not Recovered/Not Resolved]
  - Abdominal distension [Not Recovered/Not Resolved]
  - Fall [Not Recovered/Not Resolved]
  - Limb injury [Not Recovered/Not Resolved]
  - Lower respiratory tract infection [Not Recovered/Not Resolved]
  - Wound secretion [Not Recovered/Not Resolved]
  - Movement disorder [Not Recovered/Not Resolved]
  - Urinary tract discomfort [Not Recovered/Not Resolved]
  - Pain [Not Recovered/Not Resolved]
  - Feeling cold [Not Recovered/Not Resolved]
  - Bronchiectasis [Not Recovered/Not Resolved]
  - Drug dependence [Not Recovered/Not Resolved]
  - Bronchitis [Not Recovered/Not Resolved]
  - Hypoacusis [Not Recovered/Not Resolved]
  - Muscle spasms [Not Recovered/Not Resolved]
  - Dyspnoea [Recovered/Resolved]
  - Urinary tract infection [Not Recovered/Not Resolved]
  - Ear congestion [Not Recovered/Not Resolved]
  - Peripheral swelling [Not Recovered/Not Resolved]
  - Oedema [Not Recovered/Not Resolved]
  - Chills [Unknown]
  - Haemoglobin decreased [Unknown]
  - Body temperature increased [Not Recovered/Not Resolved]
  - Pneumonia [Not Recovered/Not Resolved]
  - Obstructive airways disorder [Not Recovered/Not Resolved]
  - Diarrhoea [Not Recovered/Not Resolved]
  - Pyrexia [Not Recovered/Not Resolved]
  - Blood iron decreased [Not Recovered/Not Resolved]
  - Cough [Not Recovered/Not Resolved]
  - Cardiac failure [Not Recovered/Not Resolved]
  - Heart rate increased [Not Recovered/Not Resolved]
  - Lower respiratory tract infection [Not Recovered/Not Resolved]
  - Pain [Not Recovered/Not Resolved]
  - Bronchiectasis [Not Recovered/Not Resolved]
  - Drug dependence [Not Recovered/Not Resolved]
  - Bronchitis [Not Recovered/Not Resolved]
  - Peripheral swelling [Not Recovered/Not Resolved]
  - Pollakiuria [Not Recovered/Not Resolved]
  - Haematuria [Not Recovered/Not Resolved]
  - Gait disturbance [Not Recovered/Not Resolved]
  - Panic attack [Not Recovered/Not Resolved]
  - Procedural pain [Not Recovered/Not Resolved]
  - Incorrect dose administered [Not Recovered/Not Resolved]
  - Joint injury [Not Recovered/Not Resolved]
  - Skin laceration [Not Recovered/Not Resolved]
  - Pneumonia [Not Recovered/Not Resolved]
  - Back pain [Not Recovered/Not Resolved]
  - Malaise [Not Recovered/Not Resolved]
  - Illness [Not Recovered/Not Resolved]
  - Migraine [Not Recovered/Not Resolved]
  - Decreased appetite [Not Recovered/Not Resolved]
  - Hypoaesthesia oral [Not Recovered/Not Resolved]
  - Polymyalgia rheumatica [Not Recovered/Not Resolved]
  - Arthralgia [Not Recovered/Not Resolved]
  - Calculus urinary [Not Recovered/Not Resolved]
  - Burning sensation [Not Recovered/Not Resolved]
  - Bladder pain [Not Recovered/Not Resolved]
  - Oedema [Not Recovered/Not Resolved]
  - Nasal polyps [Not Recovered/Not Resolved]
  - Blood pressure increased [Unknown]
  - Pseudomonas infection [Not Recovered/Not Resolved]
  - Pyelonephritis [Not Recovered/Not Resolved]
  - Seizure [Not Recovered/Not Resolved]
  - Herpes zoster [Not Recovered/Not Resolved]
  - Unevaluable event [Unknown]
  - Product dose omission issue [Not Recovered/Not Resolved]
  - Rales [Not Recovered/Not Resolved]
  - Muscle spasms [Not Recovered/Not Resolved]
  - Depression [Not Recovered/Not Resolved]
  - Bronchiectasis [Not Recovered/Not Resolved]
  - Alveolar osteitis [Not Recovered/Not Resolved]
  - Wrist fracture [Not Recovered/Not Resolved]
  - Paraesthesia [Not Recovered/Not Resolved]
  - Blood pressure systolic increased [Not Recovered/Not Resolved]
  - Muscular weakness [Not Recovered/Not Resolved]

NARRATIVE: CASE EVENT DATE: 20171001
